FAERS Safety Report 8354888-2 (Version None)
Quarter: 2012Q2

REPORT INFORMATION
  Report Type: 
  Country: None (occurrence: None)
  Receive Date: 20120511
  Receipt Date: 20120509
  Transmission Date: 20120825
  Serious: Yes (Hospitalization)
  Sender: FDA-Public Use
  Company Number: FR-BAYER-2012-046051

PATIENT
  Age: 64 Year
  Sex: Female

DRUGS (11)
  1. PENTOXIFYLLINE [Suspect]
     Dosage: UNK
     Route: 048
     Dates: end: 20111217
  2. ROCEPHIN [Interacting]
     Dosage: 1 G, QD
     Route: 030
     Dates: start: 20111213, end: 20111217
  3. CIPROFLOXACIN HYDROCHLORIDE [Interacting]
     Dosage: UNK
     Route: 048
     Dates: start: 20111213, end: 20111217
  4. KEPPRA [Concomitant]
  5. VALGANCICLOVIR [Concomitant]
  6. TENORMIN [Concomitant]
  7. NEXIUM [Concomitant]
  8. TRAMADOL HYDROCHLORIDE [Concomitant]
  9. PAROXETINE HYDROCHLORIDE [Suspect]
     Route: 048
  10. DIGOXIN [Concomitant]
  11. ACETAMINOPHEN [Concomitant]

REACTIONS (1)
  - ABDOMINAL WALL HAEMATOMA [None]
